FAERS Safety Report 5391418-1 (Version None)
Quarter: 2007Q3

REPORT INFORMATION
  Report Type: 
  Country: None (occurrence: None)
  Receive Date: 20070719
  Receipt Date: 20070712
  Transmission Date: 20080115
  Serious: Yes (Life-Threatening)
  Sender: FDA-Public Use
  Company Number: JP-ROCHE-506895

PATIENT
  Age: 71 Year
  Sex: Male

DRUGS (8)
  1. TICLOPIDINE HCL [Suspect]
     Indication: ANGINA PECTORIS
     Route: 048
  2. OMEPRAZOLE [Suspect]
     Indication: DRUG USE FOR UNKNOWN INDICATION
     Route: 065
  3. DIOVAN [Concomitant]
     Route: 065
  4. SIGMART [Concomitant]
     Route: 065
  5. ASPIRIN [Concomitant]
     Dosage: GENERIC NAME REPORTED: ACETYLSALICYLIC ACID
  6. AMLODIPINE [Concomitant]
     Dosage: GENERIC NAME REPORTED: AMLODIPINE BESILATE
  7. RHYTHMY [Concomitant]
  8. SIMAVASTATIN [Concomitant]

REACTIONS (1)
  - TOXIC EPIDERMAL NECROLYSIS [None]
